FAERS Safety Report 9663313 (Version 1)
Quarter: 2013Q4

REPORT INFORMATION
  Report Type: Spontaneous
  Country: GB (occurrence: GB)
  Receive Date: 20131101
  Receipt Date: 20131101
  Transmission Date: 20140711
  Serious: Yes (Life-Threatening, Hospitalization, Disabling, Other)
  Sender: FDA-Public Use
  Company Number: GB-009507513-1310GBR014566

PATIENT
  Age: 65 Year
  Sex: Female
  Weight: 172.9 kg

DRUGS (8)
  1. SITAGLIPTIN PHOSPHATE [Suspect]
     Dosage: 100 MG, UNK
     Route: 048
     Dates: start: 2009, end: 20131016
  2. RESONIUM CALCIUM [Concomitant]
  3. ANTINEOPLASTIC (UNSPECIFIED) [Concomitant]
  4. CREON (PANCREATIN) [Concomitant]
  5. DALTEPARIN SODIUM [Concomitant]
  6. GABAPENTIN [Concomitant]
  7. LANSOPRAZOLE [Concomitant]
  8. SODIUM BICARBONATE [Concomitant]

REACTIONS (4)
  - Pancreatic carcinoma [Not Recovered/Not Resolved]
  - Metastases to bone [Unknown]
  - Metastases to liver [Unknown]
  - Metastases to lung [Unknown]
